FAERS Safety Report 6501257-3 (Version None)
Quarter: 2009Q4

REPORT INFORMATION
  Report Type: 
  Country: None (occurrence: None)
  Receive Date: 20091216
  Receipt Date: 20091207
  Transmission Date: 20100525
  Serious: Yes (Other)
  Sender: FDA-Public Use
  Company Number: JP-PFIZER INC-2009308176

PATIENT
  Age: 45 Year
  Sex: Male

DRUGS (1)
  1. ZITHROMAC SR [Suspect]
     Indication: ACUTE TONSILLITIS
     Dosage: 2 G, 1X/DAY
     Route: 048
     Dates: start: 20091202, end: 20091202

REACTIONS (1)
  - SWOLLEN TONGUE [None]
